FAERS Safety Report 5701595-8 (Version None)
Quarter: 2008Q2

REPORT INFORMATION
  Report Type: 
  Country: None (occurrence: None)
  Receive Date: 20080411
  Receipt Date: 20080401
  Transmission Date: 20081010
  Serious: No
  Sender: FDA-Public Use
  Company Number: JP-SANOFI-SYNTHELABO-A01200802172

PATIENT
  Sex: Male
  Weight: 73 kg

DRUGS (2)
  1. TAKEPRON [Concomitant]
     Indication: PROPHYLAXIS AGAINST GASTROINTESTINAL ULCER
     Route: 048
     Dates: start: 20080209
  2. PLAVIX [Suspect]
     Indication: BRAIN STEM INFARCTION
     Route: 048
     Dates: start: 20080209, end: 20080221

REACTIONS (2)
  - C-REACTIVE PROTEIN INCREASED [None]
  - PYREXIA [None]
